FAERS Safety Report 12486480 (Version 1)
Quarter: 2016Q2

REPORT INFORMATION
  Report Type: Spontaneous
  Country: AU (occurrence: AU)
  Receive Date: 20160621
  Receipt Date: 20160621
  Transmission Date: 20160815
  Serious: Yes (Other)
  Sender: FDA-Public Use
  Company Number: AU-ALLERGAN-1518707US

PATIENT
  Age: 30 Year
  Sex: Female

DRUGS (1)
  1. BOTOX [Suspect]
     Active Substance: ONABOTULINUMTOXINA
     Indication: PRODUCT USED FOR UNKNOWN INDICATION
     Dosage: 155 UNITS, SINGLE
     Route: 030

REACTIONS (3)
  - Platelet count decreased [Unknown]
  - Cholecystectomy [Unknown]
  - Pregnancy [Unknown]

NARRATIVE: CASE EVENT DATE: 20151009
